FAERS Safety Report 14678286 (Version 3)
Quarter: 2018Q2

REPORT INFORMATION
  Report Type: Report from Study
  Country: BE (occurrence: BE)
  Receive Date: 20180326
  Receipt Date: 20180622
  Transmission Date: 20180711
  Serious: Yes (Other)
  Sender: FDA-Public Use
  Company Number: BE-ACCORD-064862

PATIENT
  Age: 73 Year
  Sex: Male
  Weight: 69 kg

DRUGS (4)
  1. FOLINIC ACID [Suspect]
     Active Substance: LEUCOVORIN
     Indication: COLORECTAL CANCER
     Dosage: DOSE: 1
     Route: 042
     Dates: start: 20170703
  2. FLUOROURACIL. [Suspect]
     Active Substance: FLUOROURACIL
     Indication: COLORECTAL CANCER
     Dosage: DOSE: 1
     Route: 042
     Dates: start: 20170703
  3. IRINOTECAN [Suspect]
     Active Substance: IRINOTECAN
     Indication: COLORECTAL CANCER
     Dosage: DOSE: 1
     Route: 042
     Dates: start: 20170703
  4. AVASTIN [Suspect]
     Active Substance: BEVACIZUMAB
     Indication: COLORECTAL CANCER
     Dosage: DOSE: 1
     Route: 042
     Dates: start: 20170703

REACTIONS (8)
  - Stomatitis [Recovered/Resolved]
  - Fatigue [Not Recovered/Not Resolved]
  - Abdominal pain [Recovered/Resolved]
  - Neutropenia [Recovered/Resolved]
  - Thrombocytopenia [Recovered/Resolved]
  - Dry eye [Not Recovered/Not Resolved]
  - Nausea [Recovered/Resolved]
  - Rash [Not Recovered/Not Resolved]

NARRATIVE: CASE EVENT DATE: 20170717
